FAERS Safety Report 9234494 (Version 2)
Quarter: 2013Q2

REPORT INFORMATION
  Report Type: Spontaneous
  Country: US (occurrence: US)
  Receive Date: 20130416
  Receipt Date: 20130416
  Transmission Date: 20140414
  Serious: No
  Sender: FDA-Public Use
  Company Number: US-BANPHARM-20120251

PATIENT
  Age: 59 Year
  Sex: Female
  Weight: 82.1 kg

DRUGS (11)
  1. ALEVE LIQUID GELS 220 MG [Suspect]
     Indication: ARTHRITIS
     Dosage: 2 CAPSULES AS NEEDED
     Route: 048
  2. ALEVE CAPLETS [Suspect]
     Dosage: 2 TABLETS AS NEEDED
     Route: 048
  3. SYNTHROID [Concomitant]
  4. ZETIA [Concomitant]
  5. FERROUS SULFATE [Concomitant]
  6. METFORMIN [Concomitant]
  7. PRILOSEC OTC [Concomitant]
  8. LORATADINE [Concomitant]
  9. 81MG ECOTRIN [Concomitant]
  10. PRESCRIPTION ECZEMA CREAM [Concomitant]
  11. LISINOPRIL [Concomitant]

REACTIONS (1)
  - Drug screen false positive [Unknown]
